FAERS Safety Report 15035958 (Version 1)
Quarter: 2018Q2

REPORT INFORMATION
  Report Type: Spontaneous
  Country: US (occurrence: US)
  Receive Date: 20180620
  Receipt Date: 20180620
  Transmission Date: 20180711
  Serious: No
  Sender: FDA-Public Use
  Company Number: US-TEVA-800479ACC

PATIENT
  Sex: Female

DRUGS (2)
  1. CARISOPRODOL. [Suspect]
     Active Substance: CARISOPRODOL
     Indication: ANKLE FRACTURE
     Dosage: TOOK DAILY
  2. CARISOPRODOL. [Suspect]
     Active Substance: CARISOPRODOL
     Indication: BACK PAIN

REACTIONS (4)
  - Dizziness [Unknown]
  - Wrong technique in product usage process [Unknown]
  - Feeling abnormal [Unknown]
  - Malaise [Recovering/Resolving]

NARRATIVE: CASE EVENT DATE: 20170821
